FAERS Safety Report 10211690 (Version 1)
Quarter: 2014Q2

REPORT INFORMATION
  Report Type: Spontaneous
  Country: US (occurrence: None)
  Receive Date: 20140528
  Receipt Date: 20140528
  Transmission Date: 20141212
  Serious: Yes (Hospitalization)
  Sender: FDA-Public Use
  Company Number: UNT-2014-000506

PATIENT
  Age: 59 Year
  Sex: Female

DRUGS (3)
  1. REMODULIN [Suspect]
     Indication: PULMONARY ARTERIAL HYPERTENSION
     Route: 042
     Dates: start: 20091211
  2. SILDENAFIL (SILDENAFIL) [Concomitant]
  3. LOVENOX (ENOXAPARIN SODIUM) [Concomitant]

REACTIONS (1)
  - Blood potassium increased [None]
